FAERS Safety Report 6550003-6 (Version None)
Quarter: 2010Q1

REPORT INFORMATION
  Report Type: 
  Country: None (occurrence: None)
  Receive Date: 20100119
  Receipt Date: 20091102
  Transmission Date: 20100710
  Serious: Yes (Other)
  Sender: FDA-Public Use
  Company Number: 1000011309

PATIENT
  Age: 35 Year
  Sex: Female
  Weight: 120 kg

DRUGS (11)
  1. ESCITALOPRAM OXALATE [Suspect]
     Indication: ANXIETY
     Dosage: 20 MG (20 MG, 1 IN 1 D), ORAL
     Route: 048
     Dates: start: 20091015, end: 20091027
  2. ESCITALOPRAM OXALATE [Suspect]
     Indication: DEPRESSION
     Dosage: 20 MG (20 MG, 1 IN 1 D), ORAL
     Route: 048
     Dates: start: 20091015, end: 20091027
  3. ESCITALOPRAM OXALATE [Suspect]
     Indication: ANXIETY
     Dosage: 40 MG (40 MG, 1 IN 1 D), ORAL
     Route: 048
     Dates: start: 20091028, end: 20091101
  4. ESCITALOPRAM OXALATE [Suspect]
     Indication: DEPRESSION
     Dosage: 40 MG (40 MG, 1 IN 1 D), ORAL
     Route: 048
     Dates: start: 20091028, end: 20091101
  5. ESCITALOPRAM OXALATE [Suspect]
     Indication: ANXIETY
     Dosage: 20 MG (20 MG, 1 IN 1 D), ORAL
     Route: 048
     Dates: start: 20091101
  6. ESCITALOPRAM OXALATE [Suspect]
     Indication: DEPRESSION
     Dosage: 20 MG (20 MG, 1 IN 1 D), ORAL
     Route: 048
     Dates: start: 20091101
  7. CO-CODAMOL [Concomitant]
  8. VITAMIN C [Concomitant]
  9. ZOPICLONE [Concomitant]
  10. NORDETTE-28 [Concomitant]
  11. ZOLPIDEM [Concomitant]

REACTIONS (13)
  - ANXIETY [None]
  - DEPRESSION [None]
  - HEART RATE INCREASED [None]
  - HOT FLUSH [None]
  - HYPERHIDROSIS [None]
  - MUSCLE SPASMS [None]
  - MUSCLE STRAIN [None]
  - OVERDOSE [None]
  - PALPITATIONS [None]
  - PANIC ATTACK [None]
  - POOR QUALITY SLEEP [None]
  - TREMOR [None]
  - WEIGHT INCREASED [None]
